FAERS Safety Report 8049108-2 (Version None)
Quarter: 2011Q4

REPORT INFORMATION
  Report Type: 
  Country: None (occurrence: None)
  Receive Date: 20111209
  Receipt Date: 20110909
  Transmission Date: 20120403
  Serious: No
  Sender: FDA-Public Use
  Company Number: 2011SP042780

PATIENT
  Age: 63 Year
  Sex: Male

DRUGS (3)
  1. PEGASYS [Suspect]
     Indication: PRODUCT USED FOR UNKNOWN INDICATION
  2. VICTRELIS [Suspect]
     Indication: HEPATITIS C
     Dosage: PO
     Route: 048
     Dates: start: 20110820, end: 20110906
  3. RIBAVIRIN [Suspect]
     Indication: PRODUCT USED FOR UNKNOWN INDICATION
     Dates: end: 20110906

REACTIONS (7)
  - BALANCE DISORDER [None]
  - CONCUSSION [None]
  - RASH [None]
  - FATIGUE [None]
  - HYPERAESTHESIA [None]
  - FALL [None]
  - NAUSEA [None]
